FAERS Safety Report 5280432-2 (Version None)
Quarter: 2007Q1

REPORT INFORMATION
  Report Type: 
  Country: None (occurrence: None)
  Receive Date: 20061229
  Receipt Date: 20060823
  Transmission Date: 20070707
  Serious: Yes (Other)
  Sender: FDA-Public Use
  Company Number: 2006UW16804

PATIENT
  Sex: Male

DRUGS (2)
  1. CRESTOR [Suspect]
     Dates: start: 20060819
  2. COUMADIN [Suspect]

REACTIONS (2)
  - DRUG INTERACTION [None]
  - EPISTAXIS [None]
